FAERS Safety Report 5486921-X (Version None)
Quarter: 2007Q4

REPORT INFORMATION
  Report Type: 
  Country: None (occurrence: None)
  Receive Date: 20071016
  Receipt Date: 20071009
  Transmission Date: 20080405
  Serious: Yes (Other)
  Sender: FDA-Public Use
  Company Number: US-MERCK-0710USA02500

PATIENT
  Age: 52 Year
  Sex: Male

DRUGS (3)
  1. PRINIVIL [Suspect]
     Route: 048
  2. LASIX [Suspect]
     Route: 065
  3. LASIX [Suspect]
     Route: 065

REACTIONS (1)
  - RENAL INJURY [None]
